FAERS Safety Report 6913185-X (Version None)
Quarter: 2010Q3

REPORT INFORMATION
  Report Type: 
  Country: None (occurrence: None)
  Receive Date: 20100807
  Receipt Date: 20100730
  Transmission Date: 20110219
  Serious: Yes (Hospitalization)
  Sender: FDA-Public Use
  Company Number: US-SP-2010-04174

PATIENT
  Age: 60 Year
  Sex: Female

DRUGS (3)
  1. BCG  THERAPEUTICS [Suspect]
     Indication: BLADDER TRANSITIONAL CELL CARCINOMA
     Dosage: NOT REPORTED
     Route: 065
  2. CELECOXIB [Suspect]
     Indication: BLADDER TRANSITIONAL CELL CARCINOMA
     Dosage: UNKNOWN
     Route: 065
     Dates: start: 20100622, end: 20100714
  3. PLACEBO [Suspect]
     Indication: BLADDER TRANSITIONAL CELL CARCINOMA
     Dosage: UNKNOWN
     Route: 065
     Dates: start: 20100622, end: 20100714

REACTIONS (2)
  - ARTHRITIS [None]
  - EYE INFLAMMATION [None]
